FAERS Safety Report 7500873-X (Version None)
Quarter: 2011Q2

REPORT INFORMATION
  Report Type: 
  Country: None (occurrence: None)
  Receive Date: 20110524
  Receipt Date: 20110519
  Transmission Date: 20111010
  Serious: Yes (Other)
  Sender: FDA-Public Use
  Company Number: A0928584A

PATIENT
  Age: 66 Year
  Sex: Male

DRUGS (1)
  1. SORIATANE [Suspect]
     Route: 048
     Dates: start: 20090501

REACTIONS (1)
  - NEOPLASM MALIGNANT [None]
